FAERS Safety Report 7124544-7 (Version None)
Quarter: 2010Q4

REPORT INFORMATION
  Report Type: 
  Country: None (occurrence: None)
  Receive Date: 20101128
  Receipt Date: 20101123
  Transmission Date: 20110411
  Serious: Yes (Hospitalization)
  Sender: FDA-Public Use
  Company Number: FR-BRISTOL-MYERS SQUIBB COMPANY-15404742

PATIENT
  Age: 86 Year
  Sex: Female

DRUGS (3)
  1. COAPROVEL TABS 300MG/ 25MG [Suspect]
     Indication: HYPERTENSION
     Dosage: 1 D.F:300MG/25MG;1/1DAY
     Dates: end: 20100625
  2. ARICEPT [Concomitant]
  3. SPECIAFOLDINE [Concomitant]

REACTIONS (4)
  - ATRIAL FIBRILLATION [None]
  - HYPOKALAEMIA [None]
  - HYPONATRAEMIA [None]
  - PHLEBITIS [None]
